FAERS Safety Report 7228096-2 (Version None)
Quarter: 2011Q1

REPORT INFORMATION
  Report Type: 
  Country: None (occurrence: None)
  Receive Date: 20110114
  Receipt Date: 20110107
  Transmission Date: 20110831
  Serious: Yes (Congenital Anomaly)
  Sender: FDA-Public Use
  Company Number: US-ABBOTT-11P-163-0694571-00

PATIENT
  Sex: Female

DRUGS (4)
  1. RITONAVIR SOFT GELATIN CAPSULES [Suspect]
     Indication: DRUG EXPOSURE DURING PREGNANCY
     Route: 064
  2. ATAZANAVIR [Concomitant]
     Indication: DRUG EXPOSURE DURING PREGNANCY
  3. ATRIPLA [Concomitant]
     Indication: DRUG EXPOSURE DURING PREGNANCY
  4. TENOFOVIR DISOPROXIL FUMARATE [Concomitant]
     Indication: DRUG EXPOSURE DURING PREGNANCY

REACTIONS (1)
  - WOLF-HIRSCHHORN SYNDROME [None]
